FAERS Safety Report 23524138 (Version 2)
Quarter: 2024Q1

REPORT INFORMATION
  Report Type: Spontaneous
  Country: US (occurrence: US)
  Receive Date: 20240214
  Receipt Date: 20240311
  Transmission Date: 20240410
  Serious: No
  Sender: FDA-Public Use
  Company Number: US-SA-SAC20211025000608

PATIENT

DRUGS (2)
  1. LARONIDASE [Suspect]
     Active Substance: LARONIDASE
     Indication: Mucopolysaccharidosis I
     Dosage: 5.8 MG, QW
     Route: 042
     Dates: start: 20210825
  2. LARONIDASE [Suspect]
     Active Substance: LARONIDASE
     Dosage: 8.7 (UNIT NOT KNOWN), QW
     Route: 042
     Dates: start: 20210825

REACTIONS (2)
  - Liver disorder [Unknown]
  - Wrong technique in product usage process [Unknown]
